FAERS Safety Report 6687643-X (Version None)
Quarter: 2010Q2

REPORT INFORMATION
  Report Type: 
  Country: None (occurrence: None)
  Receive Date: 20100415
  Receipt Date: 20100409
  Transmission Date: 20101027
  Serious: Yes (Life-Threatening)
  Sender: FDA-Public Use
  Company Number: CIP10000802

PATIENT
  Age: 90 Year
  Sex: Female

DRUGS (7)
  1. RISEDRONATE SODIUM [Suspect]
     Indication: OSTEOPOROSIS
     Dosage: 17.5 MG ONCE WEEKLY, ORAL
     Route: 048
     Dates: start: 20090328, end: 20090410
  2. LANSOPRAZOLE [Concomitant]
  3. LOSARTAN POTASSIUM [Concomitant]
  4. ASPIRIN [Concomitant]
  5. REMODELLIN (ALFACALCIDOL) [Concomitant]
  6. GASMOTIN (MOSAPRIDE CITRATE) [Concomitant]
  7. VIT K CAP [Concomitant]

REACTIONS (1)
  - LYMPHOMA [None]
